FAERS Safety Report 14895062 (Version 1)
Quarter: 2018Q2

REPORT INFORMATION
  Report Type: Spontaneous
  Country: US (occurrence: US)
  Receive Date: 20180426
  Receipt Date: 20180426
  Transmission Date: 20180711
  Serious: Yes (Other)
  Sender: FDA-Public Use
  Company Number: None

PATIENT
  Age: 88 Year
  Sex: Female

DRUGS (14)
  1. EXEMESTANE. [Concomitant]
     Active Substance: EXEMESTANE
  2. AMOXICILLIN. [Concomitant]
     Active Substance: AMOXICILLIN
  3. PRAVASTATIN. [Concomitant]
     Active Substance: PRAVASTATIN
  4. IBRANCE [Suspect]
     Active Substance: PALBOCICLIB
     Indication: BREAST CANCER
     Route: 048
     Dates: start: 20180119, end: 20180426
  5. GABAPENTIN. [Concomitant]
     Active Substance: GABAPENTIN
  6. BALSALAZIDE [Concomitant]
     Active Substance: BALSALAZIDE
  7. BACTRIM [Concomitant]
     Active Substance: SULFAMETHOXAZOLE\TRIMETHOPRIM
  8. ATENOLOL. [Concomitant]
     Active Substance: ATENOLOL
  9. IRBESARTAN. [Concomitant]
     Active Substance: IRBESARTAN
  10. CHLORHEXIDINE [Concomitant]
     Active Substance: CHLORHEXIDINE
  11. LORAZEPAM. [Concomitant]
     Active Substance: LORAZEPAM
  12. TRAMADOL. [Concomitant]
     Active Substance: TRAMADOL
  13. FUROSEMIDE. [Concomitant]
     Active Substance: FUROSEMIDE
  14. WARFARIN [Concomitant]
     Active Substance: WARFARIN

REACTIONS (1)
  - Disease progression [None]
